FAERS Safety Report 12349953 (Version 1)
Quarter: 2016Q2

REPORT INFORMATION
  Report Type: Spontaneous
  Country: US (occurrence: None)
  Receive Date: 20160509
  Receipt Date: 20160509
  Transmission Date: 20160815
  Serious: Yes (Death)
  Sender: FDA-Public Use
  Company Number: None

PATIENT
  Age: 46 Year
  Sex: Female
  Weight: 48.54 kg

DRUGS (5)
  1. GAMMAKED [Concomitant]
     Active Substance: HUMAN IMMUNOGLOBULIN G
  2. APAP [Concomitant]
     Active Substance: ACETAMINOPHEN
  3. BENADRYL [Concomitant]
     Active Substance: DIPHENHYDRAMINE HYDROCHLORIDE
  4. RITUXAN [Suspect]
     Active Substance: RITUXIMAB
     Indication: PEMPHIGUS
     Route: 042
     Dates: start: 20160424, end: 20160424
  5. METHYLPREDNISOLONE. [Concomitant]
     Active Substance: METHYLPREDNISOLONE

REACTIONS (1)
  - Respiratory disorder [None]
